FAERS Safety Report 8926665 (Version 2)
Quarter: 2013Q1

REPORT INFORMATION
  Report Type: Spontaneous
  Country: TR (occurrence: TR)
  Receive Date: 20121127
  Receipt Date: 20121128
  Transmission Date: 20140127
  Serious: Yes (Life-Threatening, Hospitalization)
  Sender: FDA-Public Use
  Company Number: TR-ASTRAZENECA-2012SE88842

PATIENT
  Age: 28854 Day
  Sex: Male

DRUGS (8)
  1. SEROQUEL XR [Suspect]
     Indication: DEMENTIA
     Route: 048
     Dates: start: 20121120, end: 20121121
  2. DIGOXIN [Concomitant]
     Indication: CARDIAC FAILURE
     Dosage: 50TB 1X1
     Dates: start: 20121120
  3. DELIX [Concomitant]
     Indication: HYPERTENSION
     Dosage: 28 TB 1X1
     Dates: start: 20121112
  4. ALDACTONE [Concomitant]
     Indication: HYPERTENSION
     Dosage: 1X1
     Dates: start: 20121120
  5. LASIX [Concomitant]
     Indication: DIURETIC THERAPY
     Dosage: 12 TB 1X1
     Dates: start: 20121120
  6. AVELOX [Concomitant]
     Indication: ANTIBIOTIC THERAPY
     Dosage: 2X1
     Dates: start: 20121120
  7. PARANOX [Concomitant]
     Indication: ANALGESIC THERAPY
     Dosage: 2X1
     Dates: start: 20121120
  8. DILOXOL [Concomitant]
     Indication: THROMBOSIS PROPHYLAXIS
     Dosage: 1X1
     Dates: start: 20121120

REACTIONS (2)
  - Coma [Unknown]
  - Medication error [Unknown]
